FAERS Safety Report 6312207-7 (Version None)
Quarter: 2009Q3

REPORT INFORMATION
  Report Type: 
  Country: None (occurrence: None)
  Receive Date: 20090817
  Receipt Date: 20090805
  Transmission Date: 20100115
  Serious: Yes (Death)
  Sender: FDA-Public Use
  Company Number: US-PFIZER INC-2009251534

PATIENT

DRUGS (2)
  1. CHANTIX [Suspect]
  2. GABAPENTIN [Suspect]

REACTIONS (1)
  - COMPLETED SUICIDE [None]
